FAERS Safety Report 25893945 (Version 2)
Quarter: 2025Q4

REPORT INFORMATION
  Report Type: Report from Study
  Country: US (occurrence: US)
  Receive Date: 20251008
  Receipt Date: 20251120
  Transmission Date: 20260117
  Serious: Yes (Other)
  Sender: BIOCODEX
  Company Number: US-BIOCODEX2-2025001539

PATIENT
  Sex: Female
  Weight: 56.3 kg

DRUGS (12)
  1. DIACOMIT [Suspect]
     Active Substance: STIRIPENTOL
     Indication: Severe myoclonic epilepsy of infancy
     Dosage: TAKE 1000 MG BY MOUTH TWICE DAILY.
     Dates: start: 20220819
  2. DIACOMIT [Suspect]
     Active Substance: STIRIPENTOL
     Dosage: TAKE 1000 MG BY MOUTH TWICE DAILY.
     Dates: start: 20220819, end: 20251015
  3. DIACOMIT [Suspect]
     Active Substance: STIRIPENTOL
     Route: 048
  4. DIACOMIT [Suspect]
     Active Substance: STIRIPENTOL
     Route: 048
  5. CLOBAZAM [Concomitant]
     Active Substance: CLOBAZAM
     Indication: Severe myoclonic epilepsy of infancy
  6. CLOBAZAM [Concomitant]
     Active Substance: CLOBAZAM
  7. BRIVIACT [Concomitant]
     Active Substance: BRIVARACETAM
     Indication: Product used for unknown indication
  8. BRIVIACT [Concomitant]
     Active Substance: BRIVARACETAM
  9. FOLIC ACID [Concomitant]
     Active Substance: FOLIC ACID
     Indication: Product used for unknown indication
  10. FOLIC ACID [Concomitant]
     Active Substance: FOLIC ACID
  11. Vitamin D3 (SYN) [Concomitant]
     Indication: Product used for unknown indication
  12. Vitamin D3 (SYN) [Concomitant]

REACTIONS (2)
  - Seizure [Unknown]
  - Drug ineffective [Unknown]
